FAERS Safety Report 7020421-0 (Version None)
Quarter: 2010Q3

REPORT INFORMATION
  Report Type: 
  Country: None (occurrence: None)
  Receive Date: 20100929
  Receipt Date: 20100921
  Transmission Date: 20110219
  Serious: No
  Sender: FDA-Public Use
  Company Number: JP-ASTRAZENECA-2010SE40419

PATIENT
  Age: 63 Year
  Sex: Female

DRUGS (2)
  1. IRESSA [Suspect]
     Indication: LUNG ADENOCARCINOMA
     Route: 048
     Dates: start: 20070810, end: 20070929
  2. IRESSA [Suspect]
     Route: 048
     Dates: start: 20071106

REACTIONS (1)
  - LIVER FUNCTION TEST ABNORMAL [None]
